FAERS Safety Report 13507363 (Version 6)
Quarter: 2017Q4

REPORT INFORMATION
  Report Type: Report from Study
  Country: US (occurrence: US)
  Receive Date: 20170503
  Receipt Date: 20171004
  Transmission Date: 20180320
  Serious: Yes (Hospitalization, Other)
  Sender: FDA-Public Use
  Company Number: US-ALEXION PHARMACEUTICALS INC.-A201704450

PATIENT
  Sex: Male

DRUGS (2)
  1. SOLIRIS [Suspect]
     Active Substance: ECULIZUMAB
     Dosage: UNK
     Route: 042
  2. SOLIRIS [Suspect]
     Active Substance: ECULIZUMAB
     Indication: HAEMOLYTIC URAEMIC SYNDROME
     Dosage: UNK
     Route: 042

REACTIONS (8)
  - Inappropriate schedule of drug administration [Unknown]
  - Neoplasm malignant [Not Recovered/Not Resolved]
  - Sepsis [Unknown]
  - Stress [Unknown]
  - Pneumonia [Unknown]
  - Multimorbidity [Unknown]
  - Haemolytic uraemic syndrome [Unknown]
  - Tongue neoplasm [Recovered/Resolved]
